FAERS Safety Report 6121878-X (Version None)
Quarter: 2009Q1

REPORT INFORMATION
  Report Type: 
  Country: None (occurrence: None)
  Receive Date: 20090317
  Receipt Date: 20090304
  Transmission Date: 20090719
  Serious: Yes (Hospitalization, Other)
  Sender: FDA-Public Use
  Company Number: GB-PFIZER INC-2009178889

PATIENT

DRUGS (3)
  1. PHENYTOIN AND PHENYTOIN SODIUM [Suspect]
     Indication: GRAND MAL CONVULSION
     Dosage: 600 MG, 1X/DAY
  2. CLONAZEPAM [Concomitant]
  3. VALPROIC ACID [Concomitant]

REACTIONS (2)
  - DRUG TOXICITY [None]
  - MOTOR NEURONE DISEASE [None]
